FAERS Safety Report 5322820-1 (Version None)
Quarter: 2007Q2

REPORT INFORMATION
  Report Type: 
  Country: None (occurrence: None)
  Receive Date: 20070511
  Receipt Date: 20070430
  Transmission Date: 20071010
  Serious: Yes (Other)
  Sender: FDA-Public Use
  Company Number: PFIZER INC-2007034490

PATIENT
  Age: 70 Year
  Sex: Female
  Weight: 57.8 kg

DRUGS (4)
  1. SUTENT [Suspect]
     Indication: MYELOFIBROSIS
     Route: 048
  2. CHELATION THERAPY [Concomitant]
  3. AMANTADINE HCL [Concomitant]
  4. MIRAPEX [Concomitant]

REACTIONS (1)
  - PAPILLOEDEMA [None]
